FAERS Safety Report 7943208-0 (Version None)
Quarter: 2011Q4

REPORT INFORMATION
  Report Type: 
  Country: None (occurrence: None)
  Receive Date: 20111128
  Receipt Date: 20111118
  Transmission Date: 20120403
  Serious: Yes (Other)
  Sender: FDA-Public Use
  Company Number: PHHY2011NO78412

PATIENT
  Age: 24 Year
  Sex: Male

DRUGS (2)
  1. RITALIN-SR [Suspect]
     Dosage: 30 MG, UNK
     Dates: start: 20110520
  2. ZYRTEC [Concomitant]
     Dosage: UNK UKN, UNK

REACTIONS (1)
  - BLOOD CREATINE PHOSPHOKINASE INCREASED [None]
